FAERS Safety Report 6454858-5 (Version None)
Quarter: 2009Q4

REPORT INFORMATION
  Report Type: 
  Country: None (occurrence: None)
  Receive Date: 20091124
  Receipt Date: 20091116
  Transmission Date: 20100525
  Serious: Yes (Hospitalization, Other)
  Sender: FDA-Public Use
  Company Number: DE-PFIZER INC-2009297917

PATIENT
  Sex: Male

DRUGS (2)
  1. LYRICA [Suspect]
     Indication: PAIN
     Dosage: 150 MG, 2X/DAY
     Dates: start: 20070101, end: 20091105
  2. CIATYL [Concomitant]
     Dosage: UNK
     Route: 048
     Dates: end: 20091105

REACTIONS (3)
  - ABDOMINAL DISCOMFORT [None]
  - ASPIRATION [None]
  - EPILEPSY [None]
